FAERS Safety Report 7246340-2 (Version None)
Quarter: 2011Q1

REPORT INFORMATION
  Report Type: 
  Country: None (occurrence: None)
  Receive Date: 20110126
  Receipt Date: 20110125
  Transmission Date: 20110831
  Serious: Yes (Death)
  Sender: FDA-Public Use
  Company Number: SE-ABBOTT-11P-150-0699983-00

PATIENT
  Age: 40 Year
  Sex: Male
  Weight: 62 kg

DRUGS (4)
  1. ARCOXIA [Concomitant]
     Indication: PRODUCT USED FOR UNKNOWN INDICATION
  2. HUMIRA [Suspect]
     Indication: ANKYLOSING SPONDYLITIS
     Dates: start: 20050901, end: 20070101
  3. PREDNISOLONE [Concomitant]
     Indication: PRODUCT USED FOR UNKNOWN INDICATION
  4. HUMIRA [Suspect]
     Dates: start: 20090201, end: 20100101

REACTIONS (5)
  - MENINGITIS BACTERIAL [None]
  - PNEUMONIA [None]
  - HYPOAESTHESIA [None]
  - ENCEPHALITIS [None]
  - PARAESTHESIA [None]
